FAERS Safety Report 6833374-2 (Version None)
Quarter: 2010Q3

REPORT INFORMATION
  Report Type: 
  Country: None (occurrence: None)
  Receive Date: 20100712
  Receipt Date: 20070322
  Transmission Date: 20110219
  Serious: No
  Sender: FDA-Public Use
  Company Number: US-PFIZER INC-2007025024

PATIENT
  Sex: Female
  Weight: 68.04 kg

DRUGS (4)
  1. CHANTIX [Suspect]
     Indication: SMOKING CESSATION THERAPY
     Route: 048
     Dates: start: 20070101
  2. WELLBUTRIN [Concomitant]
     Indication: DEPRESSION
     Route: 048
  3. ANALGESICS [Concomitant]
     Indication: BACK PAIN
  4. VARIOUS ALIMENTARY TRACT + METABOLISM PRODUCT [Concomitant]
     Indication: GASTRIC DISORDER

REACTIONS (2)
  - ABNORMAL DREAMS [None]
  - NIGHTMARE [None]
